FAERS Safety Report 4332436-1 (Version None)
Quarter: 2004Q1

REPORT INFORMATION
  Report Type: 
  Country: None (occurrence: None)
  Receive Date: 20040329
  Receipt Date: 20031222
  Transmission Date: 20041129
  Serious: No
  Sender: FDA-Public Use
  Company Number: 03P-163-0242553-00

PATIENT
  Age: 45 Year
  Sex: Male
  Weight: 77.1115 kg

DRUGS (7)
  1. HUMIRA [Suspect]
     Indication: RHEUMATOID ARTHRITIS
     Dosage: 40 MG 2 IN 1 WK, SUBCUTANEOUS
     Route: 058
     Dates: start: 20031021
  2. PREDNISONE [Concomitant]
  3. PANTOPRAZOLE [Concomitant]
  4. GLUCOPHAGE [Concomitant]
  5. LOVIX [Concomitant]
  6. OMEPRAZOLE [Concomitant]
  7. BUCINOLOL HYDROCHLORIDE [Concomitant]

REACTIONS (7)
  - CONDITION AGGRAVATED [None]
  - INGROWING NAIL [None]
  - INJECTION SITE HAEMORRHAGE [None]
  - INJECTION SITE PAIN [None]
  - NAIL INFECTION [None]
  - RASH [None]
  - TONGUE ULCERATION [None]
